FAERS Safety Report 4928181-1 (Version None)
Quarter: 2006Q1

REPORT INFORMATION
  Report Type: 
  Country: None (occurrence: None)
  Receive Date: 20060223
  Receipt Date: 20060203
  Transmission Date: 20060701
  Serious: Yes (Hospitalization)
  Sender: FDA-Public Use
  Company Number: DE200601001452

PATIENT
  Age: 69 Year
  Sex: Male

DRUGS (5)
  1. ZYPREXA [Suspect]
     Indication: SCHIZOPHRENIA
     Dosage: 7.5 MG, ORAL; SEE IMAGE
     Route: 048
     Dates: start: 20020101
  2. ZYPREXA [Suspect]
     Indication: SCHIZOPHRENIA
     Dosage: 7.5 MG, ORAL; SEE IMAGE
     Route: 048
     Dates: start: 20050801
  3. ZYPREXA [Suspect]
     Indication: SCHIZOPHRENIA
     Dosage: 7.5 MG, ORAL; SEE IMAGE
     Route: 048
     Dates: start: 20051201
  4. TAXILAN (PERAZINE) [Concomitant]
  5. LORAZEPAM [Concomitant]

REACTIONS (8)
  - ABDOMINAL DISTENSION [None]
  - AEROPHAGIA [None]
  - CONDITION AGGRAVATED [None]
  - DYSPNOEA [None]
  - ERUCTATION [None]
  - GASTROINTESTINAL DISORDER [None]
  - PSYCHOTIC DISORDER [None]
  - RESTLESSNESS [None]
